FAERS Safety Report 13797536 (Version 1)
Quarter: 2017Q3

REPORT INFORMATION
  Report Type: Report from Study
  Country: None (occurrence: US)
  Receive Date: 20170727
  Receipt Date: 20170727
  Transmission Date: 20171127
  Serious: Yes (Hospitalization, Other)
  Sender: FDA-Public Use
  Company Number: US-ABBVIE-17K-163-2049523-00

PATIENT
  Sex: Female

DRUGS (1)
  1. HUMIRA [Suspect]
     Active Substance: ADALIMUMAB
     Indication: RHEUMATOID ARTHRITIS
     Route: 058

REACTIONS (8)
  - Post procedural infection [Recovering/Resolving]
  - Device dislocation [Unknown]
  - Complication associated with device [Recovering/Resolving]
  - Incision site haemorrhage [Recovering/Resolving]
  - Post procedural haemorrhage [Recovering/Resolving]
  - Postoperative wound infection [Recovering/Resolving]
  - Hip arthroplasty [Unknown]
  - Mobility decreased [Unknown]

NARRATIVE: CASE EVENT DATE: 2006
